FAERS Safety Report 14229334 (Version 2)
Quarter: 2017Q4

REPORT INFORMATION
  Report Type: Spontaneous
  Country: US (occurrence: US)
  Receive Date: 20171128
  Receipt Date: 20171211
  Transmission Date: 20180321
  Serious: Yes (Life-Threatening, Other)
  Sender: FDA-Public Use
  Company Number: US-ROCHE-2032178

PATIENT
  Age: 55 Year
  Sex: Female
  Weight: 96.7 kg

DRUGS (3)
  1. KADCYLA [Suspect]
     Active Substance: ADO-TRASTUZUMAB EMTANSINE
     Indication: BREAST CANCER
     Route: 042
     Dates: start: 201708, end: 201708
  2. OXYGEN. [Concomitant]
     Active Substance: OXYGEN
  3. HERCEPTIN [Suspect]
     Active Substance: TRASTUZUMAB
     Indication: HER-2 POSITIVE BREAST CANCER
     Route: 042
     Dates: end: 201710

REACTIONS (5)
  - Pulmonary toxicity [Unknown]
  - Pulmonary toxicity [Unknown]
  - Diffuse alveolar damage [Unknown]
  - Interstitial lung disease [Unknown]
  - Organising pneumonia [Not Recovered/Not Resolved]

NARRATIVE: CASE EVENT DATE: 20171018
